FAERS Safety Report 8790871 (Version 1)
Quarter: 2012Q4

REPORT INFORMATION
  Report Type: Spontaneous
  Country: US (occurrence: None)
  Receive Date: 20120913
  Receipt Date: 20120913
  Transmission Date: 20130627
  Serious: Yes (Hospitalization)
  Sender: FDA-Public Use
  Company Number: None

PATIENT
  Age: 44 Year
  Sex: Female
  Weight: 77.02 kg

DRUGS (3)
  1. UNSPECIFIED [Concomitant]
     Indication: COLON CANCER
     Dosage: 17.5 mg po daily
     Route: 048
     Dates: start: 20120202, end: 20120302
  2. UNSPECIFIED [Suspect]
     Indication: COLON CANCER
     Dosage: 12.5 mg po daily
     Route: 048
     Dates: start: 20120304, end: 20120321
  3. NORVASC [Concomitant]

REACTIONS (5)
  - Perirectal abscess [None]
  - Colon cancer metastatic [None]
  - Malignant neoplasm progression [None]
  - Small intestinal obstruction [None]
  - Anal skin tags [None]
